FAERS Safety Report 13565513 (Version 4)
Quarter: 2017Q2

REPORT INFORMATION
  Report Type: Spontaneous
  Country: US (occurrence: US)
  Receive Date: 20170519
  Receipt Date: 20170627
  Transmission Date: 20170830
  Serious: Yes (Hospitalization)
  Sender: FDA-Public Use
  Company Number: US-ACTELION-A-US2017-154140

PATIENT
  Age: 54 Year
  Sex: Female
  Weight: 140.59 kg

DRUGS (14)
  1. ADEMPAS [Concomitant]
     Active Substance: RIOCIGUAT
     Dosage: 2 MG, TID
     Dates: start: 20170331
  2. COUMADIN [Concomitant]
     Active Substance: WARFARIN SODIUM
     Dosage: 10 MG, 6 DAYS/WEEK
  3. LASIX [Concomitant]
     Active Substance: FUROSEMIDE
  4. TRIAMTERENE AND HYDROCHLOROTHIAZIDE [Concomitant]
     Active Substance: HYDROCHLOROTHIAZIDE\TRIAMTERENE
  5. TYVASO [Concomitant]
     Active Substance: TREPROSTINIL
     Dosage: 72 MCG, QID
     Dates: start: 20170214
  6. VITAMIN D [Concomitant]
     Active Substance: CHOLECALCIFEROL
  7. ULORIC [Concomitant]
     Active Substance: FEBUXOSTAT
  8. COUMADIN [Concomitant]
     Active Substance: WARFARIN SODIUM
     Dosage: 15 MG ON MONDAYS
  9. OPSUMIT [Suspect]
     Active Substance: MACITENTAN
     Indication: PULMONARY ARTERIAL HYPERTENSION
     Dosage: 10 MG, QD
     Route: 048
     Dates: start: 20140527
  10. FOSINOPRIL [Concomitant]
     Active Substance: FOSINOPRIL
  11. NORVASC [Concomitant]
     Active Substance: AMLODIPINE BESYLATE
  12. XANAX [Concomitant]
     Active Substance: ALPRAZOLAM
  13. TOPROL XL [Concomitant]
     Active Substance: METOPROLOL SUCCINATE
  14. MOBIC [Concomitant]
     Active Substance: MELOXICAM

REACTIONS (16)
  - Epistaxis [Unknown]
  - Anaemia [Recovered/Resolved]
  - Sinusitis [Unknown]
  - Eye swelling [Not Recovered/Not Resolved]
  - Pyrexia [Unknown]
  - Cough [Unknown]
  - Fluid retention [Not Recovered/Not Resolved]
  - Contusion [Not Recovered/Not Resolved]
  - Headache [Not Recovered/Not Resolved]
  - Oropharyngeal pain [Not Recovered/Not Resolved]
  - Rales [Unknown]
  - Back pain [Unknown]
  - Unevaluable event [Unknown]
  - Transfusion [Recovered/Resolved]
  - Eye discharge [Not Recovered/Not Resolved]
  - Upper respiratory tract infection [Unknown]

NARRATIVE: CASE EVENT DATE: 20170523
